FAERS Safety Report 9559612 (Version 1)
Quarter: 2013Q3

REPORT INFORMATION
  Report Type: Spontaneous
  Country: US (occurrence: None)
  Receive Date: 20130906
  Receipt Date: 20130906
  Transmission Date: 20140515
  Serious: Yes (Hospitalization)
  Sender: FDA-Public Use
  Company Number: 163-POMAL-13071645

PATIENT
  Age: 59 Year
  Sex: Female

DRUGS (9)
  1. POMALYST [Suspect]
     Indication: PLASMA CELL MYELOMA
     Route: 048
     Dates: start: 20130228
  2. ALLOPURINOL (ALLOPURINOL) (UNKNOWN) [Concomitant]
  3. BACTRIM DS (BACTRIM) (UNKNOWN) [Concomitant]
  4. CALCIUM + VITAMIN D (LEKOVIT CA) (UNKNOWN) [Concomitant]
  5. CARVEDILOL (CARVEDILOL) (UNKNOWN) [Concomitant]
  6. CIPROFLOXACIN HCL (CIPROFLOXACIN HYDROCHLORIDE) (UNKNOWN) [Concomitant]
  7. COLACE [Concomitant]
  8. DILAUDID (HYDROMORPHONE HYDROCHLORIDE) (UNKNOWN) [Concomitant]
  9. HUMALOG KWIKPEN (HUMALOG MIX 25) (UNKNOWN) [Concomitant]

REACTIONS (1)
  - Cardiac failure congestive [None]
